FAERS Safety Report 4768044-8 (Version None)
Quarter: 2005Q3

REPORT INFORMATION
  Report Type: 
  Country: None (occurrence: None)
  Receive Date: 20050913
  Receipt Date: 20050829
  Transmission Date: 20060218
  Serious: Yes (Hospitalization)
  Sender: FDA-Public Use
  Company Number: 216663

PATIENT
  Age: 68 Year
  Sex: Female

DRUGS (6)
  1. RAPTIVA [Suspect]
     Indication: PSORIASIS
     Dosage: SEE IMAGE
     Dates: start: 20050713, end: 20050713
  2. RAPTIVA [Suspect]
     Indication: PSORIASIS
     Dosage: SEE IMAGE
     Dates: start: 20050720, end: 20050720
  3. . [Concomitant]
  4. SYNTHROID [Concomitant]
  5. DOVONEX CREAM (CALCIPOTRIENE) [Concomitant]
  6. TEMOVATE CREAM 0.05% (CLOBETASOL PROPIONATE) [Concomitant]

REACTIONS (7)
  - ANGIOPATHY [None]
  - BLOOD GLUCOSE INCREASED [None]
  - HYPOTHYROIDISM [None]
  - NERVE COMPRESSION [None]
  - NEURITIS [None]
  - OCULAR MYASTHENIA [None]
  - THERAPY NON-RESPONDER [None]
